FAERS Safety Report 11506983 (Version 2)
Quarter: 2015Q4

REPORT INFORMATION
  Report Type: Spontaneous
  Country: JP (occurrence: JP)
  Receive Date: 20150915
  Receipt Date: 20151221
  Transmission Date: 20160304
  Serious: Yes (Other)
  Sender: FDA-Public Use
  Company Number: JP-SA-2015SA137921

PATIENT
  Age: 57 Year
  Sex: Male
  Weight: 67 kg

DRUGS (2)
  1. ALLEGRA [Suspect]
     Active Substance: FEXOFENADINE HYDROCHLORIDE
     Indication: EAR PRURITUS
     Dosage: START DATE: END OF JANUARY
     Route: 048
     Dates: start: 201501
  2. ALLEGRA [Suspect]
     Active Substance: FEXOFENADINE HYDROCHLORIDE
     Indication: STAPHYLOCOCCAL INFECTION
     Dosage: START DATE: END OF JANUARY
     Route: 048
     Dates: start: 201501

REACTIONS (1)
  - Haematuria [Recovered/Resolved]
